FAERS Safety Report 24657056 (Version 1)
Quarter: 2024Q4

REPORT INFORMATION
  Report Type: Spontaneous
  Country: US (occurrence: US)
  Receive Date: 20241125
  Receipt Date: 20241125
  Transmission Date: 20250115
  Serious: No
  Sender: SANOFI AVENTIS
  Company Number: US-SA-2024SA338407

PATIENT
  Age: 36 Year
  Sex: Male
  Weight: 69.09 kg

DRUGS (3)
  1. DUPIXENT [Suspect]
     Active Substance: DUPILUMAB
     Indication: Illness
     Dosage: 600 MG, 1X
     Dates: start: 20241113, end: 20241113
  2. ALLEGRA ALLERGY [Concomitant]
     Active Substance: FEXOFENADINE HYDROCHLORIDE
  3. SINGULAIR [Concomitant]
     Active Substance: MONTELUKAST SODIUM

REACTIONS (7)
  - Lethargy [Unknown]
  - Fatigue [Unknown]
  - Tension headache [Unknown]
  - Balance disorder [Unknown]
  - Musculoskeletal stiffness [Unknown]
  - Dizziness [Unknown]
  - Diarrhoea [Not Recovered/Not Resolved]

NARRATIVE: CASE EVENT DATE: 20241101
